FAERS Safety Report 10856711 (Version 2)
Quarter: 2015Q1

REPORT INFORMATION
  Report Type: Spontaneous
  Country: US (occurrence: US)
  Receive Date: 20150223
  Receipt Date: 20150225
  Transmission Date: 20150721
  Serious: No
  Sender: FDA-Public Use
  Company Number: US-BAXTER-2015BAX007518

PATIENT

DRUGS (1)
  1. TISSEEL VH [Suspect]
     Active Substance: FIBRINOGEN HUMAN\THROMBIN HUMAN
     Indication: SURGERY
     Route: 065
     Dates: start: 20150126, end: 20150126

REACTIONS (2)
  - Post procedural urine leak [Unknown]
  - Device malfunction [Unknown]

NARRATIVE: CASE EVENT DATE: 20150126
